FAERS Safety Report 8977083 (Version 1)
Quarter: 2012Q4

REPORT INFORMATION
  Report Type: 
  Country: DK (occurrence: AU)
  Receive Date: 20121220
  Receipt Date: 20121220
  Transmission Date: 20130627
  Serious: Yes (Life-Threatening, Hospitalization)
  Sender: FDA-Public Use
  Company Number: AU-FRI-1000041166

PATIENT
  Sex: Female

DRUGS (3)
  1. LEXAPRO [Suspect]
     Indication: DEPRESSION
     Dosage: 5 mg
     Route: 048
  2. LEXAPRO [Suspect]
     Indication: DEPRESSION
     Dosage: 10 mg
     Route: 048
  3. LEXAPRO [Suspect]
     Indication: DEPRESSION
     Dosage: 5 mg
     Route: 048

REACTIONS (2)
  - Obsessive-compulsive disorder [Unknown]
  - Self injurious behaviour [Unknown]
